FAERS Safety Report 24543385 (Version 1)
Quarter: 2024Q4

REPORT INFORMATION
  Report Type: Spontaneous
  Country: US (occurrence: US)
  Receive Date: 20241024
  Receipt Date: 20241024
  Transmission Date: 20250115
  Serious: Yes (Other)
  Sender: ABBVIE
  Company Number: US-ABBVIE-5965736

PATIENT

DRUGS (1)
  1. REFRESH P.M. [Suspect]
     Active Substance: MINERAL OIL\PETROLATUM
     Indication: Dry eye
     Dosage: UNKNOWN
     Route: 047

REACTIONS (3)
  - Blindness unilateral [Unknown]
  - Product container issue [Unknown]
  - Incorrect dose administered [Unknown]
